FAERS Safety Report 16381301 (Version 2)
Quarter: 2019Q2

REPORT INFORMATION
  Report Type: Report from Study
  Country: None (occurrence: BR)
  Receive Date: 20190603
  Receipt Date: 20190612
  Transmission Date: 20190711
  Serious: Yes (Other)
  Sender: FDA-Public Use
  Company Number: BR-ABBVIE-19K-020-2801543-00

PATIENT
  Sex: Female

DRUGS (2)
  1. BETAHISTINE [Concomitant]
     Active Substance: BETAHISTINE
     Indication: LABYRINTHITIS
  2. HUMIRA [Suspect]
     Active Substance: ADALIMUMAB
     Indication: ANKYLOSING SPONDYLITIS
     Route: 058
     Dates: start: 20190425

REACTIONS (8)
  - Mobility decreased [Unknown]
  - Labyrinthitis [Unknown]
  - Dizziness [Unknown]
  - Injection site pain [Unknown]
  - Meniere^s disease [Unknown]
  - Loss of personal independence in daily activities [Unknown]
  - Fall [Unknown]
  - Emotional disorder [Unknown]

NARRATIVE: CASE EVENT DATE: 2019
